FAERS Safety Report 20047261 (Version 1)
Quarter: 2021Q4

REPORT INFORMATION
  Report Type: Spontaneous
  Country: DE (occurrence: DE)
  Receive Date: 20211109
  Receipt Date: 20211109
  Transmission Date: 20220303
  Serious: Yes (Hospitalization)
  Sender: FDA-Public Use
  Company Number: None

PATIENT
  Age: 62 Year
  Sex: Male

DRUGS (11)
  1. IBUPROFEN [Suspect]
     Active Substance: IBUPROFEN
     Indication: Product used for unknown indication
     Route: 048
     Dates: start: 20201231, end: 20210201
  2. CLOZAPINE [Suspect]
     Active Substance: CLOZAPINE
     Indication: Product used for unknown indication
     Dosage: 275-300 MG PO
     Route: 048
     Dates: start: 20210101, end: 20210103
  3. CLOZAPINE [Suspect]
     Active Substance: CLOZAPINE
     Route: 048
     Dates: start: 20210104, end: 20210118
  4. CLOZAPINE [Suspect]
     Active Substance: CLOZAPINE
     Dosage: 0-275 MG
     Route: 048
     Dates: start: 20201221, end: 20201231
  5. ESOMEPRAZOLE [Suspect]
     Active Substance: ESOMEPRAZOLE
     Indication: Product used for unknown indication
     Route: 048
     Dates: start: 20201231, end: 20210131
  6. BUPROPION [Concomitant]
     Active Substance: BUPROPION
     Indication: Product used for unknown indication
     Dosage: BIS AUF WEITERES (UNTIL FURTHER NOTICE)
     Route: 048
     Dates: start: 20201221
  7. OXYCODONE [Concomitant]
     Active Substance: OXYCODONE
     Indication: Product used for unknown indication
     Dosage: AB 12.01.2021 15 MG BIS AUF WEITERES (FROM 12.01.2021 15 MG UNTIL FURTHER NOTICE)
     Route: 048
     Dates: start: 20201231, end: 20210111
  8. LORAZEPAM [Concomitant]
     Active Substance: LORAZEPAM
     Indication: Product used for unknown indication
     Dosage: SEIT L?NGEREM (FOR A LONG TIME)
     Route: 048
     Dates: end: 20210102
  9. LORAZEPAM [Concomitant]
     Active Substance: LORAZEPAM
     Route: 048
     Dates: start: 20210103, end: 20210103
  10. LORAZEPAM [Concomitant]
     Active Substance: LORAZEPAM
     Dosage: AB 11.01.2021: 3 MG BIS AUF WEITERES (FROM 11.01.2021: 3 MG UNTIL FURTHER NOTICE)
     Dates: start: 20210104, end: 20210110
  11. CERTOPARIN SODIUM [Concomitant]
     Active Substance: CERTOPARIN SODIUM
     Indication: Product used for unknown indication
     Dosage: BIS AUF WEITERES (UNTIL FURTHER NOTICE)
     Dates: start: 20201215

REACTIONS (2)
  - Neutropenia [Recovered/Resolved]
  - Leukopenia [Recovered/Resolved]

NARRATIVE: CASE EVENT DATE: 20210105
